FAERS Safety Report 5516212-X (Version None)
Quarter: 2007Q4

REPORT INFORMATION
  Report Type: 
  Country: None (occurrence: None)
  Receive Date: 20071114
  Receipt Date: 20070109
  Transmission Date: 20080405
  Serious: No
  Sender: FDA-Public Use
  Company Number: A0634701A

PATIENT
  Age: 73 Year
  Sex: Female

DRUGS (1)
  1. COMMIT [Suspect]
     Dates: start: 20070105

REACTIONS (8)
  - ASTHENIA [None]
  - CHEST PAIN [None]
  - DIZZINESS [None]
  - EUPHORIC MOOD [None]
  - INTENTIONAL DRUG MISUSE [None]
  - MALAISE [None]
  - NASAL CONGESTION [None]
  - RHINORRHOEA [None]
